FAERS Safety Report 7308590-6 (Version None)
Quarter: 2011Q1

REPORT INFORMATION
  Report Type: 
  Country: None (occurrence: None)
  Receive Date: 20110223
  Receipt Date: 20110222
  Transmission Date: 20110831
  Serious: Yes (Other)
  Sender: FDA-Public Use
  Company Number: JP-PFIZER INC-2011037927

PATIENT
  Sex: Male

DRUGS (1)
  1. CORTRIL [Suspect]
     Dosage: 10 MG/DAY
     Dates: start: 20101218, end: 20101222

REACTIONS (1)
  - DEPRESSIVE SYMPTOM [None]
